APPROVED DRUG PRODUCT: CLARITHROMYCIN
Active Ingredient: CLARITHROMYCIN
Strength: 125MG/5ML
Dosage Form/Route: FOR SUSPENSION;ORAL
Application: A065382 | Product #001
Applicant: SUN PHARMACEUTICAL INDUSTRIES LTD
Approved: Aug 30, 2007 | RLD: No | RS: No | Type: DISCN